FAERS Safety Report 21547681 (Version 1)
Quarter: 2022Q4

REPORT INFORMATION
  Report Type: Spontaneous
  Country: AE (occurrence: None)
  Receive Date: 20221102
  Receipt Date: 20221102
  Transmission Date: 20230113
  Serious: Yes (Other)
  Sender: FDA-Public Use
  Company Number: None

PATIENT
  Age: 49 Year
  Sex: Female
  Weight: 91 kg

DRUGS (2)
  1. OTRIVIN [Suspect]
     Active Substance: XYLOMETAZOLINE
     Indication: Nasal congestion
     Dosage: OTHER STRENGTH : 0.1%;?
     Dates: start: 20221029, end: 20221102
  2. GLYCOPYRROLATE\INDACATEROL\MOMETASONE FUROATE [Concomitant]
     Active Substance: GLYCOPYRROLATE\INDACATEROL\MOMETASONE FUROATE

REACTIONS (3)
  - Rash morbilliform [None]
  - Rash [None]
  - Swelling [None]

NARRATIVE: CASE EVENT DATE: 20221102
